FAERS Safety Report 6882977-8 (Version None)
Quarter: 2010Q3

REPORT INFORMATION
  Report Type: 
  Country: None (occurrence: None)
  Receive Date: 20100702
  Receipt Date: 20100428
  Transmission Date: 20110219
  Serious: Yes (Other)
  Sender: FDA-Public Use
  Company Number: 2010044177

PATIENT
  Age: 74 Year
  Sex: Female
  Weight: 76.7 kg

DRUGS (3)
  1. ZOLOFT [Suspect]
     Indication: DEPRESSION
     Dosage: 100 MG, 1X/DAY, ORAL
     Route: 048
     Dates: start: 20050101
  2. SERTRALINE HYDROCHLORIDE [Suspect]
     Indication: DEPRESSION
     Dosage: 150 MG, 1X/DAY, ORAL
     Dates: start: 20100322
  3. VERAPAMIL [Concomitant]

REACTIONS (6)
  - DEPRESSION [None]
  - INSOMNIA [None]
  - MYALGIA [None]
  - PAIN [None]
  - SWELLING FACE [None]
  - TINNITUS [None]
